FAERS Safety Report 7231990-X (Version None)
Quarter: 2011Q1

REPORT INFORMATION
  Report Type: 
  Country: None (occurrence: None)
  Receive Date: 20110118
  Receipt Date: 20110110
  Transmission Date: 20110831
  Serious: Yes (Other)
  Sender: FDA-Public Use
  Company Number: US-GILEAD-2010-0034331

PATIENT
  Sex: Male

DRUGS (1)
  1. LETAIRIS [Suspect]
     Indication: PULMONARY ARTERIAL HYPERTENSION
     Route: 048
     Dates: start: 20101022, end: 20101203

REACTIONS (5)
  - LEFT VENTRICULAR FAILURE [None]
  - DYSPNOEA [None]
  - DECREASED ACTIVITY [None]
  - DRUG INEFFECTIVE [None]
  - DYSPNOEA PAROXYSMAL NOCTURNAL [None]
